FAERS Safety Report 4897662-1 (Version None)
Quarter: 2006Q1

REPORT INFORMATION
  Report Type: 
  Country: None (occurrence: None)
  Receive Date: 20060130
  Receipt Date: 20060130
  Transmission Date: 20060701
  Serious: Yes (Other)
  Sender: FDA-Public Use
  Company Number: None

PATIENT
  Sex: Male

DRUGS (4)
  1. CEFTRIAXONE [Suspect]
     Indication: BACTERAEMIA
     Dosage: 2 GM Q 12 HR IV
     Route: 042
     Dates: start: 20060104, end: 20060114
  2. CEFTRIAXONE [Suspect]
     Indication: MENINGITIS
     Dosage: 2 GM Q 12 HR IV
     Route: 042
     Dates: start: 20060104, end: 20060114
  3. ROCEPHIN [Suspect]
     Indication: BACTERAEMIA
     Dosage: 2GM Q12HR IV
     Route: 042
     Dates: start: 20061214, end: 20060104
  4. ROCEPHIN [Suspect]
     Indication: MENINGITIS
     Dosage: 2GM Q12HR IV
     Route: 042
     Dates: start: 20061214, end: 20060104

REACTIONS (1)
  - NEUTROPENIA [None]
